FAERS Safety Report 15661614 (Version 1)
Quarter: 2018Q4

REPORT INFORMATION
  Report Type: Spontaneous
  Country: FR (occurrence: FR)
  Receive Date: 20181127
  Receipt Date: 20181127
  Transmission Date: 20190205
  Serious: Yes (Hospitalization)
  Sender: FDA-Public Use
  Company Number: FR-TEVA-2018-FR-978771

PATIENT
  Age: 66 Year
  Sex: Female
  Weight: 90 kg

DRUGS (8)
  1. LOXAPAC 25 MG, COMPRIM? PELLICUL? [Suspect]
     Active Substance: LOXAPINE SUCCINATE
     Indication: PSYCHOTIC DISORDER
     Dosage: 3 DOSAGE FORMS DAILY;
     Route: 048
     Dates: start: 2009
  2. THERALENE 4 POUR CENT, SOLUTION BUVABLE EN GOUTTES [Suspect]
     Active Substance: TRIMEPRAZINE
     Indication: PSYCHOTIC DISORDER
     Dosage: 10 GTT DAILY;
     Route: 048
     Dates: start: 20180710, end: 20180805
  3. OLANZAPINE. [Suspect]
     Active Substance: OLANZAPINE
     Indication: PSYCHOTIC DISORDER
     Dosage: 20 MILLIGRAM DAILY;
     Route: 048
     Dates: start: 2009
  4. MICROPAKINE [Concomitant]
     Active Substance: VALPROATE SODIUM
     Dosage: 1500 MILLIGRAM DAILY;
     Route: 048
  5. ATARAX [Concomitant]
     Active Substance: HYDROXYZINE HYDROCHLORIDE
     Dosage: 100 MILLIGRAM DAILY;
     Route: 048
     Dates: start: 20180710
  6. IMOVANE [Concomitant]
     Active Substance: ZOPICLONE
     Dosage: 7.5 MILLIGRAM DAILY;
     Route: 048
  7. PROPRANOLOL [Concomitant]
     Active Substance: PROPRANOLOL HYDROCHLORIDE
     Dosage: 40 MILLIGRAM DAILY;
     Route: 048
  8. CYMBALTA [Concomitant]
     Active Substance: DULOXETINE HYDROCHLORIDE
     Dosage: 60 MILLIGRAM DAILY;
     Route: 048
     Dates: start: 20180710

REACTIONS (1)
  - Hyperthermia [Recovered/Resolved]

NARRATIVE: CASE EVENT DATE: 20180804
